FAERS Safety Report 18031249 (Version 1)
Quarter: 2020Q3

REPORT INFORMATION
  Report Type: Report from Study
  Country: IN (occurrence: IN)
  Receive Date: 20200716
  Receipt Date: 20200716
  Transmission Date: 20201103
  Serious: Yes (Death, Hospitalization)
  Sender: FDA-Public Use
  Company Number: PHHY2016IN078095

PATIENT
  Age: 29 Year
  Sex: Male

DRUGS (3)
  1. TASIGNA [Suspect]
     Active Substance: NILOTINIB
     Indication: CHRONIC MYELOID LEUKAEMIA
     Dosage: 400 MG, BID
     Route: 048
     Dates: start: 20151024, end: 20160514
  2. TASIGNA [Suspect]
     Active Substance: NILOTINIB
     Dosage: 200 MG,BID
     Route: 048
     Dates: start: 20160515, end: 20170109
  3. TASIGNA [Suspect]
     Active Substance: NILOTINIB
     Dosage: 400 MG, BID
     Route: 048
     Dates: start: 20170109

REACTIONS (3)
  - Platelet count decreased [Unknown]
  - Myocardial infarction [Fatal]
  - Pulmonary congestion [Unknown]

NARRATIVE: CASE EVENT DATE: 20190215
